FAERS Safety Report 5213017-4 (Version None)
Quarter: 2007Q1

REPORT INFORMATION
  Report Type: 
  Country: None (occurrence: None)
  Receive Date: 20070117
  Receipt Date: 20070103
  Transmission Date: 20070707
  Serious: Yes (Death)
  Sender: FDA-Public Use
  Company Number: 07H-163-0311655-00

PATIENT
  Sex: Male

DRUGS (1)
  1. QUELICIN [Suspect]
     Indication: INTUBATION
     Dosage: 3 TIMES THE NORMAL DOSE, NOT REPORTED, INTRAVENOUS
     Route: 042
     Dates: start: 20060101, end: 20060101

REACTIONS (2)
  - CARDIAC PROCEDURE COMPLICATION [None]
  - DRUG INEFFECTIVE [None]
